FAERS Safety Report 24430148 (Version 1)
Quarter: 2024Q4

REPORT INFORMATION
  Report Type: Report from Study
  Country: GB (occurrence: GB)
  Receive Date: 20241013
  Receipt Date: 20241013
  Transmission Date: 20250115
  Serious: Yes (Other)
  Sender: ALEXION PHARMACEUTICALS
  Company Number: GB-AstraZeneca-CH-00720637A

PATIENT

DRUGS (4)
  1. GEFITINIB [Suspect]
     Active Substance: GEFITINIB
     Indication: Product used for unknown indication
     Dosage: UNK
  2. GEFITINIB [Suspect]
     Active Substance: GEFITINIB
     Dosage: UNK
  3. GEFITINIB [Suspect]
     Active Substance: GEFITINIB
     Dosage: UNK
  4. GEFITINIB [Suspect]
     Active Substance: GEFITINIB
     Dosage: UNK

REACTIONS (1)
  - Non-small cell lung cancer [Unknown]
